FAERS Safety Report 5704287-4 (Version None)
Quarter: 2008Q2

REPORT INFORMATION
  Report Type: 
  Country: None (occurrence: None)
  Receive Date: 20080414
  Receipt Date: 20080403
  Transmission Date: 20081010
  Serious: Yes (Other)
  Sender: FDA-Public Use
  Company Number: GB-ASTRAZENECA-2008GB00552

PATIENT
  Age: 26003 Day
  Sex: Male
  Weight: 74.5 kg

DRUGS (3)
  1. CRESTOR [Suspect]
     Indication: BLOOD CHOLESTEROL INCREASED
     Route: 048
     Dates: start: 20050101
  2. ASPIRIN [Concomitant]
     Indication: CEREBROVASCULAR ACCIDENT PROPHYLAXIS
     Route: 048
     Dates: start: 20030101
  3. DIPYRIDAMOLE [Concomitant]
     Indication: ANTIPLATELET THERAPY
     Dosage: 200 MG

REACTIONS (1)
  - TRANSIENT ISCHAEMIC ATTACK [None]
